FAERS Safety Report 14279421 (Version 1)
Quarter: 2017Q4

REPORT INFORMATION
  Report Type: Spontaneous
  Country: US (occurrence: US)
  Receive Date: 20171212
  Receipt Date: 20171212
  Transmission Date: 20180321
  Serious: No
  Sender: FDA-Public Use
  Company Number: US-PURDUE-USA-2017-0136932

PATIENT
  Sex: Female
  Weight: 51.7 kg

DRUGS (1)
  1. HYDROMORPHONE HCL (SIMILAR TO 19-892) [Suspect]
     Active Substance: HYDROMORPHONE HYDROCHLORIDE
     Indication: PAIN
     Dosage: 1 TABLET,MAX 5 TABS A DAY
     Route: 048
     Dates: start: 20170216

REACTIONS (1)
  - Drug ineffective [Unknown]
